FAERS Safety Report 17291099 (Version 2)
Quarter: 2020Q1

REPORT INFORMATION
  Report Type: Spontaneous
  Country: US (occurrence: US)
  Receive Date: 20200121
  Receipt Date: 20200221
  Transmission Date: 20200409
  Serious: Yes (Other)
  Sender: FDA-Public Use
  Company Number: US-BAYER-2020-004298

PATIENT
  Age: 26 Year
  Sex: Female
  Weight: 83.91 kg

DRUGS (1)
  1. MIRENA [Suspect]
     Active Substance: LEVONORGESTREL
     Indication: CONTRACEPTION
     Dosage: 20 MCG/24HR, CONT
     Route: 015
     Dates: start: 20191204, end: 20191220

REACTIONS (10)
  - Ovarian enlargement [None]
  - Embedded device [Recovered/Resolved]
  - Haemorrhagic ovarian cyst [None]
  - Abdominal pain lower [Recovered/Resolved]
  - Ovarian cyst [None]
  - Peritoneal haemorrhage [None]
  - Procedural haemorrhage [None]
  - Pain [None]
  - Pelvic adhesions [None]
  - Procedural pain [Recovered/Resolved]

NARRATIVE: CASE EVENT DATE: 201912
